FAERS Safety Report 4681758-3 (Version None)
Quarter: 2005Q2

REPORT INFORMATION
  Report Type: 
  Country: None (occurrence: None)
  Receive Date: 20050603
  Receipt Date: 20050524
  Transmission Date: 20051028
  Serious: Yes (Hospitalization)
  Sender: FDA-Public Use
  Company Number: JP-ABBOTT-05P-087-0301620-00

PATIENT
  Age: 30 Year
  Sex: Male

DRUGS (3)
  1. CLARITHROMYCIN [Suspect]
     Indication: PNEUMONIA
     Route: 048
     Dates: start: 20050318, end: 20050322
  2. CARBAMAZEPINE [Concomitant]
     Indication: EPILEPSY
     Route: 048
     Dates: start: 20050318
  3. OSELTAMIVIR [Concomitant]
     Indication: INFLUENZA
     Route: 048
     Dates: start: 20050318, end: 20050322

REACTIONS (2)
  - MYALGIA [None]
  - RHABDOMYOLYSIS [None]
